FAERS Safety Report 8393978 (Version 6)
Quarter: 2013Q2

REPORT INFORMATION
  Report Type: Report from Study
  Country: IL (occurrence: IL)
  Receive Date: 20120207
  Receipt Date: 20130404
  Transmission Date: 20140414
  Serious: Yes (Hospitalization)
  Sender: FDA-Public Use
  Company Number: IL-EISAI INC-E7389-01959-CLI-IL

PATIENT
  Age: 53 Year
  Sex: Female
  Weight: 70 kg

DRUGS (17)
  1. E7389 (BOLD) [Suspect]
     Indication: UTERINE LEIOMYOSARCOMA
     Route: 041
     Dates: start: 20111220, end: 20120110
  2. LYRICA [Concomitant]
     Indication: PAIN
     Route: 048
     Dates: start: 201112, end: 201202
  3. TROGIN [Concomitant]
     Indication: PAIN
     Route: 048
     Dates: start: 201112
  4. ZANTAC [Concomitant]
     Indication: NAUSEA
     Route: 048
     Dates: start: 20120105
  5. DIPYRONE [Concomitant]
     Indication: PYREXIA
     Route: 048
     Dates: start: 20111222, end: 20111222
  6. DIPYRONE [Concomitant]
     Route: 048
     Dates: start: 20120109, end: 20120109
  7. DIPYRONE [Concomitant]
     Route: 048
     Dates: start: 20120110, end: 20120110
  8. AREDIA [Concomitant]
     Indication: BLOOD PHOSPHORUS ABNORMAL
     Route: 042
     Dates: start: 20120110
  9. TARGIN [Concomitant]
     Indication: PAIN
     Route: 048
     Dates: start: 201112, end: 201202
  10. TARGIN [Concomitant]
     Route: 048
     Dates: start: 201112, end: 20120105
  11. TARGIN [Concomitant]
     Route: 048
     Dates: start: 2011, end: 201111
  12. PREMIN [Concomitant]
     Indication: NAUSEA
     Route: 048
     Dates: start: 20120110, end: 20120110
  13. PREMIN [Concomitant]
     Route: 048
     Dates: start: 20111229, end: 20111229
  14. ACAMOL [Concomitant]
     Indication: PYREXIA
     Route: 048
     Dates: start: 20120122, end: 20120122
  15. ACAMOL [Concomitant]
     Route: 048
     Dates: start: 20120114, end: 20120114
  16. HYDROCORTISONE [Concomitant]
     Indication: STEROID THERAPY
     Route: 042
     Dates: start: 20120114, end: 20120114
  17. PROTHIAZINE [Concomitant]
     Indication: NAUSEA
     Route: 030
     Dates: start: 20120114, end: 20120114

REACTIONS (4)
  - Staphylococcal infection [Recovered/Resolved]
  - Neutropenia [Recovered/Resolved]
  - Anaemia [Recovered/Resolved]
  - Tumour associated fever [Recovered/Resolved]
